FAERS Safety Report 19225851 (Version 1)
Quarter: 2021Q2

REPORT INFORMATION
  Report Type: Spontaneous
  Country: US (occurrence: US)
  Receive Date: 20210505
  Receipt Date: 20210505
  Transmission Date: 20210717
  Serious: No
  Sender: FDA-Public Use
  Company Number: US-AMGEN-USASP2021066141

PATIENT
  Age: 63 Year
  Sex: Male

DRUGS (9)
  1. GINSENG NOS [Concomitant]
     Active Substance: HERBALS
     Dosage: 250 MILLIGRAM
  2. NIZORAL A?D [Concomitant]
     Active Substance: KETOCONAZOLE
     Dosage: UNK
  3. ENBREL [Suspect]
     Active Substance: ETANERCEPT
     Indication: PSORIASIS
     Dosage: 50 MILLIGRAM, QWK
     Route: 058
  4. RED YEAST RICE [Concomitant]
     Active Substance: DIETARY SUPPLEMENT
     Dosage: 600 MILLIGRAM
  5. COENZYME Q10 [Concomitant]
     Active Substance: DIETARY SUPPLEMENT\UBIDECARENONE
     Dosage: 100 MILLIGRAM
  6. FISH OIL [Concomitant]
     Active Substance: FISH OIL
     Dosage: 1200 MILLIGRAM
  7. B12 ACTIVE [Concomitant]
     Dosage: 1 MILLIGRAM
  8. GARLIC [ALLIUM SATIVUM] [Concomitant]
     Active Substance: GARLIC
     Dosage: 2000 MILLIGRAM
  9. VITAMIN D3 [Concomitant]
     Active Substance: CHOLECALCIFEROL
     Dosage: 25 MICROGRAM

REACTIONS (3)
  - Joint stiffness [Not Recovered/Not Resolved]
  - Overweight [Not Recovered/Not Resolved]
  - Memory impairment [Not Recovered/Not Resolved]
